FAERS Safety Report 7771635-3 (Version None)
Quarter: 2011Q3

REPORT INFORMATION
  Report Type: 
  Country: None (occurrence: None)
  Receive Date: 20110922
  Receipt Date: 20100106
  Transmission Date: 20111222
  Serious: No
  Sender: FDA-Public Use
  Company Number: US-ASTRAZENECA-2009SE15569

PATIENT
  Age: 47 Year
  Sex: Female
  Weight: 111.6 kg

DRUGS (13)
  1. SEROQUEL [Suspect]
     Route: 048
     Dates: start: 20021001, end: 20090501
  2. ZYPREXA [Concomitant]
     Dates: start: 20021016, end: 20090625
  3. PAXIL [Concomitant]
     Dates: start: 20021125
  4. AMBIEN [Concomitant]
     Indication: DEPRESSION
     Dates: start: 20020101
  5. SEROQUEL [Suspect]
     Indication: DEPRESSION
     Route: 048
     Dates: start: 20021016
  6. ELAVIL [Concomitant]
     Indication: DEPRESSION
     Dates: start: 20020101
  7. PAXIL [Concomitant]
     Dosage: 25-50 MG DAILY
     Dates: start: 20021021
  8. INVEGA [Concomitant]
     Indication: DEPRESSION
     Dates: start: 20020101
  9. ZYPREXA [Concomitant]
     Dates: start: 20021016
  10. CLARINEX [Concomitant]
     Dates: start: 20021212
  11. ADVAIR DISKUS 100/50 [Concomitant]
     Dosage: 500-50 MG 1 PUFF TWICE A DAY
     Dates: start: 20021212
  12. CELEBREX [Concomitant]
     Dates: start: 20021212
  13. PREVACID [Concomitant]
     Dates: start: 20021212

REACTIONS (8)
  - HYPERTENSION [None]
  - OBESITY [None]
  - ASTHMA [None]
  - SLEEP DISORDER [None]
  - BLOOD CHOLESTEROL INCREASED [None]
  - TYPE 2 DIABETES MELLITUS [None]
  - WEIGHT INCREASED [None]
  - JOINT INJURY [None]
